FAERS Safety Report 10928536 (Version 1)
Quarter: 2015Q1

REPORT INFORMATION
  Report Type: Spontaneous
  Country: PL (occurrence: PL)
  Receive Date: 20150319
  Receipt Date: 20150319
  Transmission Date: 20150721
  Serious: Yes (Other)
  Sender: FDA-Public Use
  Company Number: PL-ROCHE-1552876

PATIENT
  Sex: Female

DRUGS (6)
  1. VITAMIN D3 [Concomitant]
     Active Substance: CHOLECALCIFEROL
  2. BETASERC [Concomitant]
     Active Substance: BETAHISTINE
     Indication: DIZZINESS
  3. CALPEROS [Concomitant]
     Active Substance: CALCIUM CARBONATE
     Indication: OSTEOPOROSIS PROPHYLAXIS
  4. BONVIVA [Suspect]
     Active Substance: IBANDRONATE SODIUM
     Indication: OSTEOPOROSIS
     Dosage: MOST RECENT DOSE PRIOR TO EVENT 14/MAR/2015. EXPIRY DATE: DEC/2018
     Route: 048
  5. BISOCARD [Concomitant]
     Active Substance: BISOPROLOL
     Route: 065
  6. LUCETAM [Concomitant]

REACTIONS (6)
  - Loss of consciousness [Unknown]
  - Nausea [Unknown]
  - Feeling hot [Unknown]
  - Asthenia [Unknown]
  - Headache [Unknown]
  - Syncope [Unknown]

NARRATIVE: CASE EVENT DATE: 20150314
